FAERS Safety Report 16283086 (Version 2)
Quarter: 2019Q4

REPORT INFORMATION
  Report Type: Spontaneous
  Country: US (occurrence: US)
  Receive Date: 20190507
  Receipt Date: 20191129
  Transmission Date: 20200122
  Serious: Yes (Death, Other)
  Sender: FDA-Public Use
  Company Number: US-ASTRAZENECA-2019SE09990

PATIENT
  Age: 24362 Day
  Sex: Male
  Weight: 101.3 kg

DRUGS (22)
  1. GABAPENTIN. [Concomitant]
     Active Substance: GABAPENTIN
  2. LANTUS [Concomitant]
     Active Substance: INSULIN GLARGINE
  3. TYLENOL [Concomitant]
     Active Substance: ACETAMINOPHEN
  4. PREDNISONE. [Concomitant]
     Active Substance: PREDNISONE
  5. FUROSEMIDE. [Concomitant]
     Active Substance: FUROSEMIDE
  6. PREDNISONE. [Concomitant]
     Active Substance: PREDNISONE
  7. TACROLIMUS. [Concomitant]
     Active Substance: TACROLIMUS
  8. FUROSEMIDE. [Concomitant]
     Active Substance: FUROSEMIDE
  9. ASPIRIN. [Concomitant]
     Active Substance: ASPIRIN
  10. ROSUVASTATIN CALCIUM. [Concomitant]
     Active Substance: ROSUVASTATIN CALCIUM
  11. OXYCODONE [Concomitant]
     Active Substance: OXYCODONE
  12. HUMALOG [Concomitant]
     Active Substance: INSULIN LISPRO
  13. ROSUVASTATIN. [Concomitant]
     Active Substance: ROSUVASTATIN
  14. MULTIVITAMINS [Concomitant]
     Active Substance: VITAMINS
  15. DEXILANT [Concomitant]
     Active Substance: DEXLANSOPRAZOLE
  16. ISOSORBIDE MONONITRATE. [Concomitant]
     Active Substance: ISOSORBIDE MONONITRATE
  17. PRILOSEC [Suspect]
     Active Substance: OMEPRAZOLE MAGNESIUM
     Route: 048
  18. METOPROLOL SUCCINATE. [Concomitant]
     Active Substance: METOPROLOL SUCCINATE
  19. TAMSULOSIN [Concomitant]
     Active Substance: TAMSULOSIN
  20. NEXIUM [Suspect]
     Active Substance: ESOMEPRAZOLE MAGNESIUM
     Route: 048
  21. DOXYCYCLINE HYCLATE. [Concomitant]
     Active Substance: DOXYCYCLINE HYCLATE
  22. LATUDA [Concomitant]
     Active Substance: LURASIDONE HYDROCHLORIDE

REACTIONS (11)
  - End stage renal disease [Unknown]
  - Death [Fatal]
  - Acute kidney injury [Unknown]
  - Nephrogenic anaemia [Unknown]
  - Renal injury [Unknown]
  - Chronic kidney disease-mineral and bone disorder [Unknown]
  - Rebound acid hypersecretion [Unknown]
  - Chronic kidney disease [Unknown]
  - Renal failure [Unknown]
  - Hyperparathyroidism secondary [Unknown]
  - Tubulointerstitial nephritis [Unknown]

NARRATIVE: CASE EVENT DATE: 20101022
